FAERS Safety Report 16941156 (Version 1)
Quarter: 2019Q4

REPORT INFORMATION
  Report Type: Spontaneous
  Country: US (occurrence: US)
  Receive Date: 20190828
  Receipt Date: 20190828
  Transmission Date: 20200122
  Serious: Yes (Hospitalization)
  Sender: FDA-Public Use
  Company Number: None

PATIENT
  Age: 60 Year
  Sex: Female
  Weight: 94.35 kg

DRUGS (1)
  1. IODOHIPPURATE SODIUM, I-131 [Suspect]
     Active Substance: IODOHIPPURATE SODIUM I-131
     Indication: BASEDOW^S DISEASE
     Dates: start: 20190723, end: 20190723

REACTIONS (1)
  - Anaphylactic reaction [None]

NARRATIVE: CASE EVENT DATE: 20190723
